FAERS Safety Report 4829073-9 (Version None)
Quarter: 2005Q4

REPORT INFORMATION
  Report Type: 
  Country: None (occurrence: None)
  Receive Date: 20051014
  Receipt Date: 20050722
  Transmission Date: 20060501
  Serious: No
  Sender: FDA-Public Use
  Company Number: 2005SP000825

PATIENT
  Age: 71 Year
  Sex: Female

DRUGS (1)
  1. LUNESTA [Suspect]
     Indication: INITIAL INSOMNIA
     Dosage: 1 MG;HS;ORAL
     Route: 048
     Dates: start: 20050514, end: 20050514

REACTIONS (2)
  - DYSGEUSIA [None]
  - INITIAL INSOMNIA [None]
